FAERS Safety Report 10544761 (Version 1)
Quarter: 2014Q4

REPORT INFORMATION
  Report Type: Spontaneous
  Country: US (occurrence: None)
  Receive Date: 20141020
  Receipt Date: 20141020
  Transmission Date: 20150529
  Serious: No
  Sender: FDA-Public Use
  Company Number: AEGR000571

PATIENT
  Age: 60 Year
  Sex: Female
  Weight: 92.1 kg

DRUGS (11)
  1. RANEXA(RANOLAZINE) [Concomitant]
  2. NITROGLYCERIN(GLYCERYL TRINITRATE) [Concomitant]
  3. NORVASC(AMLODIPINE BESILATE) [Concomitant]
  4. HUMALOG(INSULIN LISPRO) [Concomitant]
  5. PLAVIX(CLOPIDOGREL BISULFATE) [Concomitant]
  6. VITAMIN C [Concomitant]
     Active Substance: ASCORBIC ACID
  7. VITAMIN D (ERGOCALCIFEROL) [Concomitant]
     Active Substance: ERGOCALCIFEROL
  8. PRINIVIL(LISINOPRIL DIHYDRATE) [Concomitant]
  9. JUXTAPID [Suspect]
     Active Substance: LOMITAPIDE MESYLATE
     Route: 048
     Dates: start: 20131126
  10. EFFEXOR(VENLAFAXINE HYDROCHLORIDE) [Concomitant]
  11. METOPROL TARTRATE(METOPROLOL TARTRATE) [Concomitant]

REACTIONS (2)
  - Drug ineffective [None]
  - Product used for unknown indication [None]

NARRATIVE: CASE EVENT DATE: 20131126
